FAERS Safety Report 9750802 (Version 1)
Quarter: 2013Q4

REPORT INFORMATION
  Report Type: Spontaneous
  Country: US (occurrence: US)
  Receive Date: 20131212
  Receipt Date: 20131212
  Transmission Date: 20140711
  Serious: No
  Sender: FDA-Public Use
  Company Number: US-BIOGENIDEC-2013BI099508

PATIENT
  Sex: Female

DRUGS (2)
  1. TECFIDERA [Suspect]
     Indication: MULTIPLE SCLEROSIS
  2. AVONEX [Concomitant]
     Indication: MULTIPLE SCLEROSIS
     Route: 030
     Dates: start: 20130820

REACTIONS (9)
  - Migraine [Recovered/Resolved]
  - Blood pressure increased [Recovered/Resolved]
  - Pain in extremity [Unknown]
  - Back pain [Unknown]
  - Multiple sclerosis [Unknown]
  - Visual impairment [Unknown]
  - Memory impairment [Unknown]
  - Gait disturbance [Unknown]
  - Vomiting [Recovered/Resolved]
